FAERS Safety Report 14860049 (Version 1)
Quarter: 2018Q2

REPORT INFORMATION
  Report Type: Spontaneous
  Country: US (occurrence: US)
  Receive Date: 20180508
  Receipt Date: 20180508
  Transmission Date: 20180711
  Serious: Yes (Hospitalization, Other)
  Sender: FDA-Public Use
  Company Number: US-ROCHE-2117808

PATIENT
  Age: 78 Year
  Sex: Female
  Weight: 62.65 kg

DRUGS (4)
  1. KLONOPIN [Suspect]
     Active Substance: CLONAZEPAM
     Dosage: ONGOING: YES
     Route: 048
     Dates: start: 201707
  2. KLONOPIN [Suspect]
     Active Substance: CLONAZEPAM
     Indication: ANXIETY
     Dosage: ABOUT 30 YEARS AGO ;ONGOING: NO
     Route: 048
     Dates: end: 201707
  3. MECLIZINE [Concomitant]
     Active Substance: MECLIZINE HYDROCHLORIDE
     Indication: VERTIGO
     Dosage: STARTED IN THE1970^S ;ONGOING: YES
     Route: 065
  4. KLONOPIN [Suspect]
     Active Substance: CLONAZEPAM
     Dosage: ONGOING: NO
     Route: 048
     Dates: end: 201707

REACTIONS (16)
  - Transient ischaemic attack [Unknown]
  - Vitamin B12 deficiency [Not Recovered/Not Resolved]
  - Gastrooesophageal reflux disease [Not Recovered/Not Resolved]
  - Arachnoid cyst [Unknown]
  - Memory impairment [Not Recovered/Not Resolved]
  - Gait disturbance [Recovering/Resolving]
  - Parkinson^s disease [Unknown]
  - Tremor [Unknown]
  - Ill-defined disorder [Not Recovered/Not Resolved]
  - Feeling abnormal [Not Recovered/Not Resolved]
  - Sleep disorder [Not Recovered/Not Resolved]
  - Thyroid disorder [Not Recovered/Not Resolved]
  - Balance disorder [Recovering/Resolving]
  - Unevaluable event [Not Recovered/Not Resolved]
  - Fatigue [Not Recovered/Not Resolved]
  - Asthenia [Not Recovered/Not Resolved]

NARRATIVE: CASE EVENT DATE: 201707
